FAERS Safety Report 22166659 (Version 1)
Quarter: 2023Q2

REPORT INFORMATION
  Report Type: Spontaneous
  Country: US (occurrence: None)
  Receive Date: 20230401
  Receipt Date: 20230401
  Transmission Date: 20230722
  Serious: Yes (Other)
  Sender: FDA-Public Use
  Company Number: None

PATIENT
  Age: 27 Year
  Sex: Female
  Weight: 78.75 kg

DRUGS (6)
  1. AJOVY [Suspect]
     Active Substance: FREMANEZUMAB-VFRM
     Indication: Migraine
     Dosage: OTHER FREQUENCY : 28 DAYS;?OTHER ROUTE : INTO THIGH;?
     Route: 050
     Dates: start: 20230115, end: 20230115
  2. AMITRIPTYLINE [Suspect]
     Active Substance: AMITRIPTYLINE
  3. TOPAMAX [Concomitant]
     Active Substance: TOPIRAMATE
  4. Bacloflen [Concomitant]
  5. RIZATRIPTAN [Concomitant]
     Active Substance: RIZATRIPTAN
  6. VITAMIN D NOS [Concomitant]
     Active Substance: VITAMIN D NOS

REACTIONS (1)
  - Stevens-Johnson syndrome [None]

NARRATIVE: CASE EVENT DATE: 20230201
